FAERS Safety Report 8531316 (Version 2)
Quarter: 2012Q4

REPORT INFORMATION
  Report Type: 
  Country: US (occurrence: US)
  Receive Date: 20120426
  Receipt Date: 20120921
  Transmission Date: 20130627
  Serious: Yes (Hospitalization)
  Sender: FDA-Public Use
  Company Number: US-BAYER-2012-039348

PATIENT
  Age: 26 Year
  Sex: Female
  Weight: 79.37 kg

DRUGS (21)
  1. YAZ [Suspect]
     Indication: PREMENSTRUAL SYNDROME
     Dosage: UNK
     Dates: start: 200902, end: 2010
  2. YASMIN [Suspect]
     Indication: PREMENSTRUAL SYNDROME
     Dosage: UNK
     Dates: start: 200902, end: 2010
  3. OCELLA [Suspect]
     Indication: PREMENSTRUAL SYNDROME
     Dosage: UNK
     Dates: start: 200902, end: 2010
  4. PROZAC [Concomitant]
     Dosage: UNK
     Dates: start: 20100209
  5. IBUPROFEN [Concomitant]
     Indication: PAIN
     Dosage: UNK
     Dates: start: 20090910, end: 20100210
  6. CHERATUSSIN AC [Concomitant]
     Indication: COUGH
     Dosage: 10 ml,every 4 hours prn
     Route: 048
     Dates: start: 20100119, end: 20100212
  7. FERROUS SULFATE [Concomitant]
     Indication: ANAEMIA
     Dosage: 325 mg,two to three times daily
     Route: 048
     Dates: start: 20090824, end: 20100310
  8. TYLENOL [Concomitant]
     Indication: PAIN
     Dosage: 500 UNK, every 4 hours as needed
     Route: 048
     Dates: start: 20090910, end: 20100310
  9. ZOLOFT [Concomitant]
     Dosage: 25 mg,daily
     Route: 048
     Dates: start: 20100209, end: 20100325
  10. VALTREX [Concomitant]
     Dosage: 500 mg, daily
     Route: 048
     Dates: start: 20090729, end: 20111213
  11. OMEPRAZOLE [Concomitant]
     Dosage: 20 mg, daily to twice daily
     Dates: start: 20090910, end: 20111213
  12. PROVERA [Concomitant]
     Dosage: UNK
     Dates: start: 20100106, end: 20100119
  13. MONONESSA-28 [Concomitant]
     Dosage: UNK
     Dates: start: 20100210, end: 20100212
  14. LACTULOSE [Concomitant]
  15. COUGH AND COLD PREPARATIONS [Concomitant]
  16. PROTONIX [Concomitant]
  17. ASPIRIN [Concomitant]
     Dosage: 325 mg, UNK
  18. AMBIEN [Concomitant]
     Indication: INSOMNIA
  19. OXYCODONE [Concomitant]
     Indication: HEADACHE
  20. FLEXERIL [Concomitant]
  21. VICODIN [Concomitant]

REACTIONS (4)
  - Cerebrovascular accident [None]
  - Injury [None]
  - Pain [None]
  - Pain [None]
